FAERS Safety Report 9859779 (Version 4)
Quarter: 2014Q1

REPORT INFORMATION
  Report Type: Report from Study
  Country: US (occurrence: US)
  Receive Date: 20140131
  Receipt Date: 20140318
  Transmission Date: 20141002
  Serious: Yes (Hospitalization, Other)
  Sender: FDA-Public Use
  Company Number: US-ACTELION-A-NJ2014-94173

PATIENT
  Age: 22 Year
  Sex: Female

DRUGS (3)
  1. VELETRI [Suspect]
     Indication: PULMONARY ARTERIAL HYPERTENSION
     Dosage: 6.5 NG/KG, PER MIN
     Route: 042
     Dates: start: 20131213
  2. ALBUTEROL [Concomitant]
  3. FLOVENT [Concomitant]

REACTIONS (12)
  - Deep vein thrombosis [Unknown]
  - Asthma [Unknown]
  - Endocarditis [Not Recovered/Not Resolved]
  - Catheter site infection [Recovered/Resolved]
  - Heart rate increased [Not Recovered/Not Resolved]
  - Catheter site erythema [Recovered/Resolved]
  - Pain [Recovered/Resolved]
  - Staphylococcal bacteraemia [Not Recovered/Not Resolved]
  - Staphylococcus test positive [Not Recovered/Not Resolved]
  - Catheter management [Recovered/Resolved]
  - Skin reaction [Unknown]
  - Dermatitis contact [Not Recovered/Not Resolved]
